FAERS Safety Report 10578298 (Version 1)
Quarter: 2014Q4

REPORT INFORMATION
  Report Type: Spontaneous
  Country: US (occurrence: None)
  Receive Date: 20141111
  Receipt Date: 20141111
  Transmission Date: 20150529
  Serious: Yes (Disabling)
  Sender: FDA-Public Use
  Company Number: None

PATIENT
  Age: 30 Year
  Sex: Female
  Weight: 86.18 kg

DRUGS (1)
  1. ZYRTEC [Suspect]
     Active Substance: CETIRIZINE HYDROCHLORIDE
     Indication: MULTIPLE ALLERGIES
     Dosage: 1 PILL
     Route: 048
     Dates: start: 20040510, end: 20141110

REACTIONS (4)
  - Drug withdrawal syndrome [None]
  - Pruritus generalised [None]
  - Mechanical urticaria [None]
  - Urticaria [None]

NARRATIVE: CASE EVENT DATE: 20120515
